FAERS Safety Report 8956948 (Version 3)
Quarter: 2013Q2

REPORT INFORMATION
  Report Type: Spontaneous
  Country: US (occurrence: US)
  Receive Date: 20121210
  Receipt Date: 20130426
  Transmission Date: 20140414
  Serious: No
  Sender: FDA-Public Use
  Company Number: US-009507513-1212USA001276

PATIENT
  Sex: Female
  Weight: 114.56 kg

DRUGS (10)
  1. VICTRELIS [Suspect]
     Indication: HEPATITIS C
     Dosage: 4 CAPSULES, TID
     Route: 048
     Dates: start: 20121026
  2. PEGINTRON [Suspect]
     Dosage: UNK
     Dates: start: 20120916
  3. RIBAVIRIN (WARRICK) [Suspect]
  4. SYNTHROID [Concomitant]
  5. CLONAZEPAM [Concomitant]
  6. CENTRUM SILVER [Concomitant]
  7. CYANOCOBALAMIN [Concomitant]
  8. VITAMIN D (UNSPECIFIED) [Concomitant]
  9. SELENIUM (UNSPECIFIED) [Concomitant]
  10. NAPROXEN [Concomitant]

REACTIONS (5)
  - Dry mouth [Not Recovered/Not Resolved]
  - Adverse event [Not Recovered/Not Resolved]
  - Product physical issue [Unknown]
  - Mental disorder [Unknown]
  - Adverse event [Unknown]
